FAERS Safety Report 9296825 (Version 1)
Quarter: 2013Q2

REPORT INFORMATION
  Report Type: Spontaneous
  Country: TR (occurrence: TR)
  Receive Date: 20130517
  Receipt Date: 20130517
  Transmission Date: 20140414
  Serious: Yes (Hospitalization)
  Sender: FDA-Public Use
  Company Number: TR-ROXANE LABORATORIES, INC.-2013-RO-00778RO

PATIENT
  Age: 49 Year
  Sex: Male

DRUGS (2)
  1. AZATHIOPRINE [Suspect]
     Indication: PEMPHIGUS
  2. PREDNISOLONE [Suspect]
     Indication: PEMPHIGUS

REACTIONS (2)
  - Splenic abscess [Recovered/Resolved]
  - Brucellosis [Recovered/Resolved]
